FAERS Safety Report 6431698-4 (Version None)
Quarter: 2009Q4

REPORT INFORMATION
  Report Type: 
  Country: None (occurrence: None)
  Receive Date: 20091103
  Receipt Date: 20091019
  Transmission Date: 20100525
  Serious: Yes (Hospitalization)
  Sender: FDA-Public Use
  Company Number: 02100-JPN-05-0411

PATIENT
  Age: 75 Year
  Sex: Male
  Weight: 65.5 kg

DRUGS (8)
  1. PLETAL [Suspect]
     Indication: CEREBRAL INFARCTION
     Dosage: 81 MG, QD ORAL
     Route: 048
     Dates: start: 20041129, end: 20050818
  2. NORVASC [Concomitant]
  3. MAIBASTAN (PRAVASTATIN SODIUM) [Concomitant]
  4. AMARYL [Concomitant]
  5. NITRAZEPAM [Concomitant]
  6. SENNOSIDE (SENNOSIDE) [Concomitant]
  7. MAGNESIUM OXIDE (MAGNESIUM OXIDE) [Concomitant]
  8. PANTOSIN (PANTETHINE) [Concomitant]

REACTIONS (2)
  - ANAEMIA [None]
  - GASTRIC ULCER HAEMORRHAGE [None]
